FAERS Safety Report 5264732-8 (Version None)
Quarter: 2007Q1

REPORT INFORMATION
  Report Type: 
  Country: None (occurrence: None)
  Receive Date: 20061124
  Receipt Date: 20060801
  Transmission Date: 20070707
  Serious: Yes (Hospitalization, Disabling)
  Sender: FDA-Public Use
  Company Number: WAES 0607USA03651

PATIENT
  Age: 89 Year
  Sex: Male

DRUGS (2)
  1. VYTORIN [Suspect]
     Dosage: 10- 10 MG/DAILY/PO
     Route: 048
     Dates: end: 20060101
  2. [THERAPY UNSPECIFIED] [Concomitant]

REACTIONS (1)
  - RHABDOMYOLYSIS [None]
